FAERS Safety Report 9179339 (Version 2)
Quarter: 2013Q2

REPORT INFORMATION
  Report Type: Spontaneous
  Country: IT (occurrence: IT)
  Receive Date: 20130321
  Receipt Date: 20130426
  Transmission Date: 20140414
  Serious: Yes (Hospitalization)
  Sender: FDA-Public Use
  Company Number: IT-009507513-1303ITA009144

PATIENT
  Age: 56 Year
  Sex: Male

DRUGS (2)
  1. PEGINTRON [Suspect]
     Indication: HEPATITIS C
     Dosage: 120 MICROGRAM, WEEKLY
     Route: 058
     Dates: start: 20130115
  2. COPEGUS [Suspect]
     Indication: HEPATITIS C
     Dosage: 1200 MG, DAILY
     Route: 048
     Dates: start: 20130115

REACTIONS (2)
  - Psychomotor hyperactivity [Recovering/Resolving]
  - Syncope [Recovering/Resolving]
